FAERS Safety Report 25530804 (Version 1)
Quarter: 2025Q3

REPORT INFORMATION
  Report Type: Spontaneous
  Country: EU (occurrence: EU)
  Receive Date: 20250708
  Receipt Date: 20250708
  Transmission Date: 20251021
  Serious: Yes (Hospitalization)
  Sender: AMGEN
  Company Number: EU-AMGEN-DEUSP2025131814

PATIENT

DRUGS (2)
  1. APREMILAST [Suspect]
     Active Substance: APREMILAST
     Indication: Eczema nummular
     Dosage: 30 MILLIGRAM, BID
     Route: 065
  2. APREMILAST [Suspect]
     Active Substance: APREMILAST
     Indication: Off label use

REACTIONS (2)
  - Eczema nummular [Unknown]
  - Off label use [Unknown]
